FAERS Safety Report 11430931 (Version 1)
Quarter: 2015Q3

REPORT INFORMATION
  Report Type: Spontaneous
  Country: US (occurrence: US)
  Receive Date: 20150828
  Receipt Date: 20150828
  Transmission Date: 20151125
  Serious: No
  Sender: FDA-Public Use
  Company Number: US-BIOGENIDEC-2015BI117961

PATIENT
  Age: 72 Year
  Sex: Female

DRUGS (3)
  1. VOLTAREN [Concomitant]
     Active Substance: DICLOFENAC SODIUM
  2. AVONEX [Suspect]
     Active Substance: INTERFERON BETA-1A
     Indication: PRODUCT USED FOR UNKNOWN INDICATION
     Route: 030
  3. GILENYA [Concomitant]
     Active Substance: FINGOLIMOD HYDROCHLORIDE

REACTIONS (10)
  - Dry mouth [Unknown]
  - Arthralgia [Unknown]
  - Fall [Unknown]
  - Hypoaesthesia [Unknown]
  - Arthropathy [Unknown]
  - Hemiparesis [Unknown]
  - Flatulence [Unknown]
  - Musculoskeletal pain [Unknown]
  - Pain [Unknown]
  - Gait disturbance [Unknown]
